FAERS Safety Report 12139486 (Version 1)
Quarter: 2016Q1

REPORT INFORMATION
  Report Type: Spontaneous
  Country: BR (occurrence: BR)
  Receive Date: 20160303
  Receipt Date: 20160303
  Transmission Date: 20160526
  Serious: Yes (Hospitalization, Other)
  Sender: FDA-Public Use
  Company Number: BR-ROCHE-1720066

PATIENT
  Sex: Female

DRUGS (8)
  1. ACTEMRA [Suspect]
     Active Substance: TOCILIZUMAB
     Indication: RHEUMATIC DISORDER
     Route: 042
  2. ENBREL [Concomitant]
     Active Substance: ETANERCEPT
     Indication: RHEUMATIC DISORDER
     Dosage: ENBREL PFS
     Route: 065
     Dates: end: 2015
  3. ATENOLOL. [Concomitant]
     Active Substance: ATENOLOL
     Indication: HYPERTENSION
  4. LOSARTAN. [Concomitant]
     Active Substance: LOSARTAN
     Indication: HYPERTENSION
  5. ENBREL [Concomitant]
     Active Substance: ETANERCEPT
     Indication: ARTHRITIS INFECTIVE
  6. TRAVATAN [Concomitant]
     Active Substance: TRAVOPROST
     Indication: GLAUCOMA
  7. AZUKON [Concomitant]
     Active Substance: GLICLAZIDE
     Indication: DIABETES MELLITUS
  8. METFORMIN [Concomitant]
     Active Substance: METFORMIN HYDROCHLORIDE
     Indication: DIABETES MELLITUS

REACTIONS (5)
  - Pneumonia [Unknown]
  - Arthralgia [Recovering/Resolving]
  - Pain in extremity [Not Recovered/Not Resolved]
  - Hypersensitivity [Unknown]
  - Drug ineffective [Unknown]
